FAERS Safety Report 6342365-X (Version None)
Quarter: 2009Q3

REPORT INFORMATION
  Report Type: 
  Country: None (occurrence: None)
  Receive Date: 20090907
  Receipt Date: 20090901
  Transmission Date: 20100115
  Serious: Yes (Other)
  Sender: FDA-Public Use
  Company Number: US-ELI_LILLY_AND_COMPANY-US200909000331

PATIENT
  Age: 59 Year
  Sex: Female

DRUGS (17)
  1. GEMZAR [Suspect]
     Indication: BREAST CANCER METASTATIC
     Dates: end: 20090801
  2. HERCEPTIN [Concomitant]
     Indication: BREAST CANCER METASTATIC
     Dates: end: 20090801
  3. ATENOLOL [Concomitant]
     Dosage: 50 MG, UNK
  4. NEURONTIN [Concomitant]
     Dosage: 300 MG, UNK
  5. LEXAPRO [Concomitant]
     Dosage: 20 MG, UNK
  6. TRAMADOL HCL [Concomitant]
     Dosage: 50 MG, UNK
  7. MIRAPEX [Concomitant]
  8. OXYCODONE [Concomitant]
  9. OXYCODONE [Concomitant]
     Dosage: UNK, 2/D
     Route: 048
  10. FUROSEMIDE [Concomitant]
  11. ZANTAC [Concomitant]
     Dosage: UNK, AS NEEDED
  12. CENTRUM SILVER [Concomitant]
  13. FENTANYL [Concomitant]
  14. PROVIGIL [Concomitant]
  15. KLOR-CON [Concomitant]
  16. TAMOXIFEN CITRATE [Concomitant]
  17. PROCHLORPERAZINE [Concomitant]

REACTIONS (1)
  - DECUBITUS ULCER [None]
